FAERS Safety Report 11665768 (Version 1)
Quarter: 2015Q4

REPORT INFORMATION
  Report Type: Spontaneous
  Country: AT (occurrence: AT)
  Receive Date: 20151027
  Receipt Date: 20151027
  Transmission Date: 20160304
  Serious: Yes (Hospitalization, Other)
  Sender: FDA-Public Use
  Company Number: AT-INCYTE CORPORATION-2015IN005502

PATIENT
  Age: 76 Year
  Sex: Female

DRUGS (3)
  1. JAKAFI [Suspect]
     Active Substance: RUXOLITINIB
     Indication: MYELOFIBROSIS
     Dosage: UNK
     Route: 065
     Dates: start: 201307, end: 20150712
  2. JAKAFI [Suspect]
     Active Substance: RUXOLITINIB
     Dosage: UNK
     Route: 065
     Dates: start: 201508
  3. CORTISON [Concomitant]
     Active Substance: CORTISONE ACETATE
     Indication: PRODUCT USED FOR UNKNOWN INDICATION
     Route: 065
     Dates: start: 201508

REACTIONS (5)
  - General physical health deterioration [Unknown]
  - Cytokine release syndrome [Unknown]
  - Asthenia [Unknown]
  - Respiratory failure [Unknown]
  - Erysipelas [Unknown]

NARRATIVE: CASE EVENT DATE: 20150712
